FAERS Safety Report 7125088-9 (Version None)
Quarter: 2010Q4

REPORT INFORMATION
  Report Type: 
  Country: None (occurrence: None)
  Receive Date: 20101129
  Receipt Date: 20101014
  Transmission Date: 20110411
  Serious: Yes (Hospitalization, Other)
  Sender: FDA-Public Use
  Company Number: US-AMGEN-USASP2010000328

PATIENT

DRUGS (3)
  1. ENBREL [Suspect]
     Indication: RHEUMATOID ARTHRITIS
     Dates: start: 20050305
  2. ENBREL [Suspect]
  3. TREXALL [Concomitant]
     Dosage: UNK

REACTIONS (8)
  - IMPAIRED HEALING [None]
  - INTESTINAL POLYP [None]
  - KIDNEY INFECTION [None]
  - LYMPHADENOPATHY [None]
  - NAIL DISORDER [None]
  - ONYCHOCLASIS [None]
  - RETINAL DETACHMENT [None]
  - RHEUMATOID ARTHRITIS [None]
